FAERS Safety Report 18293916 (Version 3)
Quarter: 2020Q3

REPORT INFORMATION
  Report Type: Spontaneous
  Country: FI (occurrence: FI)
  Receive Date: 20200922
  Receipt Date: 20200924
  Transmission Date: 20201103
  Serious: Yes (Hospitalization, Other)
  Sender: FDA-Public Use
  Company Number: FI-ROCHE-2680567

PATIENT
  Age: 72 Year
  Sex: Female

DRUGS (1)
  1. TECENTRIQ [Suspect]
     Active Substance: ATEZOLIZUMAB
     Indication: BLADDER CANCER
     Dosage: SUBSEQUENT DOSE ON 18/SEP/2020
     Route: 042
     Dates: start: 20200824

REACTIONS (2)
  - Haemoglobin decreased [Recovered/Resolved]
  - Pathological fracture [Unknown]

NARRATIVE: CASE EVENT DATE: 20200829
